FAERS Safety Report 13780413 (Version 3)
Quarter: 2017Q3

REPORT INFORMATION
  Report Type: Spontaneous
  Country: US (occurrence: US)
  Receive Date: 20170724
  Receipt Date: 20170905
  Transmission Date: 20171127
  Serious: No
  Sender: FDA-Public Use
  Company Number: US-009507513-1707USA006865

PATIENT
  Sex: Female
  Weight: 86.62 kg

DRUGS (1)
  1. NEXPLANON [Suspect]
     Active Substance: ETONOGESTREL
     Dosage: UNK
     Route: 059

REACTIONS (5)
  - Product quality issue [Unknown]
  - Device expulsion [Recovered/Resolved]
  - Device deployment issue [Recovered/Resolved]
  - Complication of device insertion [Recovered/Resolved]
  - No adverse event [Unknown]
